FAERS Safety Report 7399758-1 (Version None)
Quarter: 2011Q2

REPORT INFORMATION
  Report Type: 
  Country: None (occurrence: None)
  Receive Date: 20110407
  Receipt Date: 20110328
  Transmission Date: 20111010
  Serious: Yes (Other)
  Sender: FDA-Public Use
  Company Number: TR-WATSON-2011-04894

PATIENT
  Age: 31 Year
  Sex: Male

DRUGS (2)
  1. DILTIA XT (WATSON LABORATORIES) [Suspect]
     Indication: ATRIAL FIBRILLATION
     Dosage: UNK
     Route: 048
  2. PROPAFENONE HCL [Suspect]
     Indication: ATRIAL FIBRILLATION
     Dosage: 600 MG, SINGLE
     Route: 048

REACTIONS (2)
  - BRUGADA SYNDROME [None]
  - CONDITION AGGRAVATED [None]
